FAERS Safety Report 18049038 (Version 1)
Quarter: 2020Q3

REPORT INFORMATION
  Report Type: Spontaneous
  Country: US (occurrence: US)
  Receive Date: 20200721
  Receipt Date: 20200721
  Transmission Date: 20201103
  Serious: No
  Sender: FDA-Public Use
  Company Number: US-MYLANLABS-2020M1063810

PATIENT
  Sex: Female
  Weight: 59 kg

DRUGS (3)
  1. MESALAMINE EXTENDED?RELEASE CAPSULES USP [Suspect]
     Active Substance: MESALAMINE
     Indication: COLITIS ULCERATIVE
     Dosage: 2 DOSAGE FORM, QD (2 DAILY)
     Dates: start: 20200705, end: 20200708
  2. LORATIN [Concomitant]
     Active Substance: LORATADINE
     Dosage: 1?2 DURING THE DAY
     Dates: start: 20200706
  3. DIPHENHYDRAMINE. [Concomitant]
     Active Substance: DIPHENHYDRAMINE
     Dosage: 1?2 AT BEDTIME
     Dates: start: 20200706

REACTIONS (1)
  - Rash macular [Not Recovered/Not Resolved]
